FAERS Safety Report 17492579 (Version 2)
Quarter: 2020Q1

REPORT INFORMATION
  Report Type: Spontaneous
  Country: DK (occurrence: DK)
  Receive Date: 20200303
  Receipt Date: 20200309
  Transmission Date: 20200409
  Serious: Yes (Hospitalization, Other)
  Sender: FDA-Public Use
  Company Number: DK-PFIZER INC-2020090680

PATIENT
  Age: 63 Year
  Sex: Female

DRUGS (2)
  1. RAMIPRIL. [Suspect]
     Active Substance: RAMIPRIL
     Dosage: UNK (MAXIMUM RECOMMENDED DOSE)
  2. RAMIPRIL. [Suspect]
     Active Substance: RAMIPRIL
     Indication: WHITE COAT HYPERTENSION
     Dosage: UNK (HALF OF MAXIMUM RECOMMENDED DOSE)

REACTIONS (4)
  - Dizziness [Unknown]
  - Hypotension [Unknown]
  - Drug ineffective [Unknown]
  - Discomfort [Unknown]
